FAERS Safety Report 13011151 (Version 3)
Quarter: 2017Q2

REPORT INFORMATION
  Report Type: Report from Study
  Country: CN (occurrence: CN)
  Receive Date: 20161208
  Receipt Date: 20170617
  Transmission Date: 20170830
  Serious: Yes (Hospitalization)
  Sender: FDA-Public Use
  Company Number: CN-AMGEN-CHNCT2016172657

PATIENT
  Age: 62 Year
  Sex: Female

DRUGS (1)
  1. ROMIPLOSTIM - KHK [Suspect]
     Active Substance: ROMIPLOSTIM
     Indication: IMMUNE THROMBOCYTOPENIC PURPURA
     Dosage: 2 MUG/KG, UNK
     Route: 065
     Dates: start: 20160817, end: 20170103

REACTIONS (1)
  - Sinusitis fungal [Recovering/Resolving]

NARRATIVE: CASE EVENT DATE: 20161129
